FAERS Safety Report 20590354 (Version 1)
Quarter: 2022Q1

REPORT INFORMATION
  Report Type: Spontaneous
  Country: US (occurrence: None)
  Receive Date: 20220313
  Receipt Date: 20220313
  Transmission Date: 20220423
  Serious: Yes (Other)
  Sender: FDA-Public Use
  Company Number: None

PATIENT
  Age: 94 Year
  Sex: Female
  Weight: 51.3 kg

DRUGS (6)
  1. NUPLAZID [Suspect]
     Active Substance: PIMAVANSERIN TARTRATE
     Indication: Hallucination
     Dates: start: 20220228, end: 20220306
  2. RYTARY [Concomitant]
     Active Substance: CARBIDOPA\LEVODOPA
  3. AMIODARONE [Concomitant]
     Active Substance: AMIODARONE
  4. levoxy [Concomitant]
  5. SEROQUEL [Concomitant]
     Active Substance: QUETIAPINE FUMARATE
  6. VITAMINS [Concomitant]
     Active Substance: VITAMINS

REACTIONS (4)
  - Dysarthria [None]
  - Drooling [None]
  - Therapy interrupted [None]
  - Balance disorder [None]

NARRATIVE: CASE EVENT DATE: 20220310
